APPROVED DRUG PRODUCT: FOSINOPRIL SODIUM AND HYDROCHLOROTHIAZIDE
Active Ingredient: FOSINOPRIL SODIUM; HYDROCHLOROTHIAZIDE
Strength: 20MG;12.5MG
Dosage Form/Route: TABLET;ORAL
Application: A076961 | Product #002 | TE Code: AB
Applicant: SANDOZ INC
Approved: Sep 28, 2005 | RLD: No | RS: No | Type: RX